FAERS Safety Report 4844039-0 (Version None)
Quarter: 2005Q4

REPORT INFORMATION
  Report Type: 
  Country: None (occurrence: None)
  Receive Date: 20051202
  Receipt Date: 20051118
  Transmission Date: 20060501
  Serious: Yes (Hospitalization)
  Sender: FDA-Public Use
  Company Number: US-MERCK-0511USA04605

PATIENT
  Age: 88 Year
  Sex: Female

DRUGS (2)
  1. ALDORIL 15 [Suspect]
     Indication: HYPERTENSION
     Route: 048
     Dates: start: 19661003
  2. LANOXIN [Concomitant]
     Route: 065

REACTIONS (4)
  - COOMBS POSITIVE HAEMOLYTIC ANAEMIA [None]
  - HYPOACUSIS [None]
  - LE CELLS PRESENT [None]
  - RHEUMATOID FACTOR POSITIVE [None]
